FAERS Safety Report 10129083 (Version 1)
Quarter: 2014Q2

REPORT INFORMATION
  Report Type: Spontaneous
  Country: US (occurrence: None)
  Receive Date: 20140425
  Receipt Date: 20140425
  Transmission Date: 20141212
  Serious: Yes (Hospitalization, Other)
  Sender: FDA-Public Use
  Company Number: None

PATIENT
  Age: 85 Year
  Sex: Male
  Weight: 58.5 kg

DRUGS (1)
  1. SILDENAFIL [Suspect]
     Indication: ERECTILE DYSFUNCTION
     Route: 048
     Dates: start: 20140316

REACTIONS (7)
  - Cerebrovascular accident [None]
  - Dizziness [None]
  - Nausea [None]
  - Vomiting [None]
  - Vision blurred [None]
  - Unresponsive to stimuli [None]
  - Visual impairment [None]
